FAERS Safety Report 11474170 (Version 1)
Quarter: 2015Q3

REPORT INFORMATION
  Report Type: Spontaneous
  Country: US (occurrence: US)
  Receive Date: 20150908
  Receipt Date: 20150908
  Transmission Date: 20151125
  Serious: No
  Sender: FDA-Public Use
  Company Number: US-JAZZ-2013-US-002789

PATIENT
  Age: 56 Year
  Sex: Female

DRUGS (9)
  1. XYREM [Suspect]
     Active Substance: SODIUM OXYBATE
     Dosage: 4.5 G, FIRST NIGHTLY DOSE
     Route: 048
     Dates: start: 200905
  2. XYREM [Suspect]
     Active Substance: SODIUM OXYBATE
     Indication: NARCOLEPSY
     Dosage: 2.25 G, BID
     Route: 048
     Dates: start: 200806, end: 2008
  3. XYREM [Suspect]
     Active Substance: SODIUM OXYBATE
     Dosage: 4.0 G, SECOND NIGHTLY DOSE
     Route: 048
     Dates: start: 201204
  4. XYREM [Suspect]
     Active Substance: SODIUM OXYBATE
     Dosage: 4.0 G, BID
     Route: 048
     Dates: start: 200811
  5. XYREM [Suspect]
     Active Substance: SODIUM OXYBATE
     Dosage: 4.0 G, FIRST NIGHTLY DOSE
     Route: 048
     Dates: start: 200808, end: 2008
  6. XYREM [Suspect]
     Active Substance: SODIUM OXYBATE
     Dosage: 3.0 G, SECOND NIGHTLY DOSE
     Route: 048
     Dates: start: 200808, end: 2008
  7. XYREM [Suspect]
     Active Substance: SODIUM OXYBATE
     Dosage: 5.0 G, FIRST NIGHTLY DOSE
     Route: 048
     Dates: start: 201204
  8. XYREM [Suspect]
     Active Substance: SODIUM OXYBATE
     Dosage: 3.0 G, BID
     Route: 048
     Dates: start: 200807, end: 2008
  9. XYREM [Suspect]
     Active Substance: SODIUM OXYBATE
     Dosage: 4.0 G, SECOND NIGHTLY DOSE
     Route: 048
     Dates: start: 200905

REACTIONS (1)
  - Dental operation [Unknown]

NARRATIVE: CASE EVENT DATE: 20131029
